FAERS Safety Report 23401012 (Version 1)
Quarter: 2024Q1

REPORT INFORMATION
  Report Type: Spontaneous
  Country: JO (occurrence: JO)
  Receive Date: 20240115
  Receipt Date: 20240115
  Transmission Date: 20240410
  Serious: Yes (Other)
  Sender: FDA-Public Use
  Company Number: JO-MLMSERVICE-20240102-4755843-1

PATIENT
  Age: 47 Year
  Sex: Male

DRUGS (10)
  1. DEXAMETHASONE [Suspect]
     Active Substance: DEXAMETHASONE
     Indication: Product used for unknown indication
     Route: 065
     Dates: start: 202204
  2. VANCOMYCIN [Suspect]
     Active Substance: VANCOMYCIN
     Indication: Atypical pneumonia
     Route: 065
     Dates: start: 202204
  3. VANCOMYCIN [Suspect]
     Active Substance: VANCOMYCIN
     Indication: Klebsiella infection
  4. AMIKACIN [Suspect]
     Active Substance: AMIKACIN
     Indication: Atypical pneumonia
     Route: 065
     Dates: start: 202204
  5. AMIKACIN [Suspect]
     Active Substance: AMIKACIN
     Indication: Klebsiella infection
  6. MEROPENEM [Suspect]
     Active Substance: MEROPENEM
     Indication: Atypical pneumonia
     Route: 065
     Dates: start: 202204
  7. MEROPENEM [Suspect]
     Active Substance: MEROPENEM
     Indication: Klebsiella infection
  8. COLISTIN [Suspect]
     Active Substance: COLISTIN
     Indication: Atypical pneumonia
     Route: 065
     Dates: start: 202204
  9. COLISTIN [Suspect]
     Active Substance: COLISTIN
     Indication: Klebsiella infection
  10. OXYGEN [Concomitant]
     Active Substance: OXYGEN
     Indication: Oxygen therapy
     Dosage: MASK
     Dates: start: 202204

REACTIONS (4)
  - Urinary tract candidiasis [Recovered/Resolved]
  - Candida infection [Recovered/Resolved]
  - Candida infection [Recovered/Resolved]
  - Anuria [Recovered/Resolved]

NARRATIVE: CASE EVENT DATE: 20220101
